FAERS Safety Report 11102334 (Version 1)
Quarter: 2015Q2

REPORT INFORMATION
  Report Type: Spontaneous
  Country: NL (occurrence: NL)
  Receive Date: 20150511
  Receipt Date: 20150511
  Transmission Date: 20150821
  Serious: Yes (Hospitalization)
  Sender: FDA-Public Use
  Company Number: NL-TEVA-561625ISR

PATIENT
  Age: 45 Year
  Sex: Male

DRUGS (3)
  1. CAPECITABINE. [Suspect]
     Active Substance: CAPECITABINE
     Indication: OESOPHAGEAL ADENOCARCINOMA
     Dosage: 14 DAYS IN A CYCLE
     Route: 048
  2. CISPLATIN. [Concomitant]
     Active Substance: CISPLATIN
     Dosage: 160 MG FOR ONE DAY IN A CYCLE
     Route: 042
  3. TRASTUZUMAB [Concomitant]
     Active Substance: TRASTUZUMAB
     Dosage: 638 MG X 1DAY
     Route: 042

REACTIONS (1)
  - Colitis [Recovered/Resolved]
